FAERS Safety Report 11348012 (Version 1)
Quarter: 2015Q3

REPORT INFORMATION
  Report Type: Spontaneous
  Country: US (occurrence: US)
  Receive Date: 20150803
  Receipt Date: 20150803
  Transmission Date: 20151125
  Serious: Yes (Other)
  Sender: FDA-Public Use
  Company Number: US-ELI_LILLY_AND_COMPANY-US201112006186

PATIENT
  Sex: Male
  Weight: 45.81 kg

DRUGS (4)
  1. STRATTERA [Suspect]
     Active Substance: ATOMOXETINE HYDROCHLORIDE
     Indication: ATTENTION DEFICIT/HYPERACTIVITY DISORDER
     Dosage: 18 MG, QD
     Dates: start: 201111
  2. STRATTERA [Suspect]
     Active Substance: ATOMOXETINE HYDROCHLORIDE
     Dosage: 25 MG, QD
  3. MELATONIN [Concomitant]
     Active Substance: MELATONIN
     Dosage: 3 MG, EACH EVENING
  4. STRATTERA [Suspect]
     Active Substance: ATOMOXETINE HYDROCHLORIDE
     Dosage: 40 MG, QD
     Dates: end: 20111219

REACTIONS (7)
  - Abnormal behaviour [Recovered/Resolved]
  - Suicidal ideation [Recovered/Resolved]
  - Negativism [Recovered/Resolved]
  - Hostility [Recovered/Resolved]
  - School refusal [Recovered/Resolved]
  - Drug ineffective [Recovered/Resolved]
  - Aggression [Recovered/Resolved]
